FAERS Safety Report 7495202-4 (Version None)
Quarter: 2011Q2

REPORT INFORMATION
  Report Type: 
  Country: None (occurrence: None)
  Receive Date: 20110520
  Receipt Date: 20110510
  Transmission Date: 20111010
  Serious: Yes (Other)
  Sender: FDA-Public Use
  Company Number: CH-GILEAD-2011-0036151

PATIENT
  Sex: Male
  Weight: 70 kg

DRUGS (8)
  1. MARCUMAR [Concomitant]
     Route: 048
     Dates: start: 20090106, end: 20110103
  2. TRUVADA [Suspect]
     Indication: HIV INFECTION
     Dates: start: 20060201, end: 20110103
  3. NORVIR [Suspect]
     Indication: HIV INFECTION
     Dates: start: 20060201, end: 20110103
  4. EFFEXOR [Concomitant]
  5. RITALIN [Concomitant]
     Indication: ATTENTION DEFICIT/HYPERACTIVITY DISORDER
     Route: 048
     Dates: start: 20080331, end: 20110103
  6. REYATAZ [Suspect]
     Indication: HIV INFECTION
     Dates: start: 20060201, end: 20110103
  7. CANDESARTAN CILEXETIL [Concomitant]
     Indication: HYPERTENSION
     Route: 048
     Dates: start: 20091106, end: 20110103
  8. BUPRENORPHINE [Concomitant]
     Indication: DRUG DEPENDENCE
     Route: 048
     Dates: start: 20050513

REACTIONS (6)
  - RENAL ATROPHY [None]
  - ANURIA [None]
  - CHILLS [None]
  - PYREXIA [None]
  - CHROMATURIA [None]
  - RENAL FAILURE ACUTE [None]
